FAERS Safety Report 5365277-7 (Version None)
Quarter: 2007Q2

REPORT INFORMATION
  Report Type: 
  Country: None (occurrence: None)
  Receive Date: 20070530
  Receipt Date: 20070207
  Transmission Date: 20071010
  Serious: No
  Sender: FDA-Public Use
  Company Number: 2006PV022167

PATIENT
  Age: 51 Year
  Sex: Female
  Weight: 99.7913 kg

DRUGS (6)
  1. BYETTA [Suspect]
     Indication: DIABETES MELLITUS NON-INSULIN-DEPENDENT
     Dosage: 5 MCG;QD;SC
     Route: 058
     Dates: start: 20060926, end: 20060927
  2. BYETTA [Suspect]
     Indication: WEIGHT CONTROL
     Dosage: 5 MCG;QD;SC
     Route: 058
     Dates: start: 20060926, end: 20060927
  3. NOVOLIN 70/30 [Concomitant]
  4. PROZAC [Concomitant]
  5. XANAX [Concomitant]
  6. ZYRTEC [Concomitant]

REACTIONS (12)
  - BLOOD GLUCOSE INCREASED [None]
  - DRUG INEFFECTIVE FOR UNAPPROVED INDICATION [None]
  - DYSPNOEA [None]
  - ENERGY INCREASED [None]
  - EYELID OEDEMA [None]
  - FEELING JITTERY [None]
  - HYPERSENSITIVITY [None]
  - INCREASED APPETITE [None]
  - LACRIMATION INCREASED [None]
  - LIP SWELLING [None]
  - NASAL CONGESTION [None]
  - RHINORRHOEA [None]
